FAERS Safety Report 4691159-X (Version None)
Quarter: 2005Q2

REPORT INFORMATION
  Report Type: 
  Country: None (occurrence: None)
  Receive Date: 20050610
  Receipt Date: 20050601
  Transmission Date: 20051028
  Serious: Yes (Other)
  Sender: FDA-Public Use
  Company Number: 2005083579

PATIENT
  Age: 43 Year
  Sex: Female
  Weight: 79.3795 kg

DRUGS (1)
  1. ZOLOFT [Suspect]
     Indication: ANXIETY
     Dosage: 150 MG (1 IN 1 D) ORAL
     Route: 048
     Dates: start: 20030101

REACTIONS (2)
  - TRANSIENT ISCHAEMIC ATTACK [None]
  - TREMOR [None]
